FAERS Safety Report 4983178-0 (Version None)
Quarter: 2006Q2

REPORT INFORMATION
  Report Type: 
  Country: None (occurrence: None)
  Receive Date: 20060426
  Receipt Date: 20060414
  Transmission Date: 20061013
  Serious: Yes (Other)
  Sender: FDA-Public Use
  Company Number: US-GLAXOSMITHKLINE-A0602103A

PATIENT
  Sex: Female
  Weight: 3.2 kg

DRUGS (1)
  1. BUPROPION HYDROCHLORIDE [Suspect]
     Indication: MAJOR DEPRESSION
     Dosage: 100MG PER DAY

REACTIONS (2)
  - BLOOD BILIRUBIN INCREASED [None]
  - DRUG EXPOSURE DURING PREGNANCY [None]
